FAERS Safety Report 5102124-2 (Version None)
Quarter: 2006Q3

REPORT INFORMATION
  Report Type: 
  Country: None (occurrence: None)
  Receive Date: 20060911
  Receipt Date: 20060901
  Transmission Date: 20061208
  Serious: Yes (Other)
  Sender: FDA-Public Use
  Company Number: CH-MERCK-0609CHE00002

PATIENT
  Age: 58 Year
  Sex: Female

DRUGS (6)
  1. COZAAR [Suspect]
     Indication: ESSENTIAL HYPERTENSION
     Route: 048
     Dates: end: 20060810
  2. METFORMIN HYDROCHLORIDE [Suspect]
     Indication: DIABETES MELLITUS
     Route: 048
     Dates: end: 20060810
  3. NITROFURANTOIN [Suspect]
     Route: 048
     Dates: end: 20060810
  4. DOMPERIDONE [Concomitant]
     Indication: GASTRIC DISORDER
     Route: 048
     Dates: end: 20060810
  5. TIBOLONE [Concomitant]
     Route: 048
     Dates: end: 20060810
  6. SACCHAROMYCES BOULARDII (AS DRUG) [Concomitant]
     Route: 048
     Dates: end: 20060810

REACTIONS (1)
  - HEPATOCELLULAR DAMAGE [None]
